FAERS Safety Report 15813911 (Version 1)
Quarter: 2019Q1

REPORT INFORMATION
  Report Type: Spontaneous
  Country: US (occurrence: US)
  Receive Date: 20190111
  Receipt Date: 20190111
  Transmission Date: 20190417
  Serious: No
  Sender: FDA-Public Use
  Company Number: US-TEVA-2018-US-988856

PATIENT
  Sex: Male

DRUGS (1)
  1. PERMETHRIN 5 PERCENT CREAM [Suspect]
     Active Substance: PERMETHRIN
     Route: 065

REACTIONS (2)
  - Dry skin [Unknown]
  - Skin exfoliation [Unknown]
